FAERS Safety Report 5893705-7 (Version None)
Quarter: 2008Q3

REPORT INFORMATION
  Report Type: 
  Country: None (occurrence: None)
  Receive Date: 20080923
  Receipt Date: 20080916
  Transmission Date: 20090109
  Serious: Yes (Hospitalization)
  Sender: FDA-Public Use
  Company Number: ES-AMGEN-US299426

PATIENT
  Age: 63 Year
  Sex: Female

DRUGS (1)
  1. ENBREL [Suspect]
     Indication: RHEUMATOID ARTHRITIS
     Route: 058
     Dates: start: 19980318, end: 20030804

REACTIONS (4)
  - ARTHRITIS BACTERIAL [None]
  - FISTULA [None]
  - OSTEORADIONECROSIS [None]
  - STAPHYLOCOCCAL INFECTION [None]
